FAERS Safety Report 4643120-9 (Version None)
Quarter: 2005Q2

REPORT INFORMATION
  Report Type: 
  Country: None (occurrence: None)
  Receive Date: 20050421
  Receipt Date: 20050408
  Transmission Date: 20051028
  Serious: Yes (Disabling, Other)
  Sender: FDA-Public Use
  Company Number: 2005057491

PATIENT
  Age: 54 Year
  Sex: Female
  Weight: 81.6475 kg

DRUGS (4)
  1. BEXTRA [Suspect]
     Indication: ARTHRITIS
     Dosage: (20 MG, Q6H), ORAL
     Route: 048
     Dates: start: 20020101
  2. ALL OTHER THERAPEUTIC PRODUCTS (ALL OTHER THERAPEUTIC PRODUCTS) [Suspect]
     Indication: RASH MACULAR
     Dosage: TOPICAL
     Route: 061
  3. ALL OTHER THERAPEUTIC PRODUCTS (ALL OTHER THERAPEUTIC PRODUCTS) [Suspect]
     Indication: SKIN LESION
     Dosage: TOPICAL
     Route: 061
  4. ASPIRIN [Concomitant]

REACTIONS (15)
  - ARTHRALGIA [None]
  - ATRIAL FIBRILLATION [None]
  - BLOOD CHOLESTEROL INCREASED [None]
  - CARDIAC DISORDER [None]
  - CARDIAC FLUTTER [None]
  - CHEST PAIN [None]
  - CORONARY ARTERY OCCLUSION [None]
  - DRUG INEFFECTIVE [None]
  - EXTRASYSTOLES [None]
  - FUNGAL INFECTION [None]
  - MUSCULOSKELETAL PAIN [None]
  - RASH MACULAR [None]
  - SKIN REACTION [None]
  - WEIGHT DECREASED [None]
  - WEIGHT INCREASED [None]
